FAERS Safety Report 6196574-3 (Version None)
Quarter: 2009Q2

REPORT INFORMATION
  Report Type: 
  Country: None (occurrence: None)
  Receive Date: 20090520
  Receipt Date: 20090514
  Transmission Date: 20091009
  Serious: No
  Sender: FDA-Public Use
  Company Number: US-B.I. PHARMACEUTICALS,INC./RIDGEFIELD-2009-BP-04760BP

PATIENT
  Age: 67 Year
  Sex: Male
  Weight: 113.6 kg

DRUGS (1)
  1. MICARDIS [Suspect]
     Dates: end: 20090501

REACTIONS (1)
  - ARTHRALGIA [None]
